FAERS Safety Report 6860789-9 (Version None)
Quarter: 2010Q3

REPORT INFORMATION
  Report Type: 
  Country: None (occurrence: None)
  Receive Date: 20100719
  Receipt Date: 20100719
  Transmission Date: 20110219
  Serious: Yes (Hospitalization, Other)
  Sender: FDA-Public Use
  Company Number: None

PATIENT
  Age: 20 Year
  Sex: Female
  Weight: 58.9676 kg

DRUGS (3)
  1. YAZ [Suspect]
     Indication: ACNE
     Dosage: 1 PILL EVERY MORNING. APPROX 1-2 YEARS
     Dates: start: 20070203, end: 20080603
  2. YAZ [Suspect]
     Indication: AFFECTIVE DISORDER
     Dosage: 1 PILL EVERY MORNING. APPROX 1-2 YEARS
     Dates: start: 20070203, end: 20080603
  3. YAZ [Suspect]
     Indication: CONTRACEPTION
     Dosage: 1 PILL EVERY MORNING. APPROX 1-2 YEARS
     Dates: start: 20070203, end: 20080603

REACTIONS (16)
  - ABDOMINAL DISTENSION [None]
  - ABDOMINAL PAIN [None]
  - BACTERIAL INFECTION [None]
  - CHOLECYSTECTOMY [None]
  - CONSTIPATION [None]
  - DIARRHOEA [None]
  - EATING DISORDER [None]
  - GASTROINTESTINAL DISORDER [None]
  - IMMUNE SYSTEM DISORDER [None]
  - MALAISE [None]
  - MENSTRUAL DISORDER [None]
  - MIGRAINE [None]
  - NAUSEA [None]
  - POLYCYSTIC OVARIES [None]
  - VIRAL INFECTION [None]
  - VOMITING [None]
